FAERS Safety Report 7072869-6 (Version None)
Quarter: 2010Q4

REPORT INFORMATION
  Report Type: 
  Country: None (occurrence: None)
  Receive Date: 20101029
  Receipt Date: 20100427
  Transmission Date: 20110411
  Serious: No
  Sender: FDA-Public Use
  Company Number: A0851619A

PATIENT
  Age: 61 Year
  Sex: Female

DRUGS (8)
  1. ADVAIR DISKUS 100/50 [Suspect]
     Indication: CHRONIC OBSTRUCTIVE PULMONARY DISEASE
     Route: 055
     Dates: start: 20080101
  2. SPIRIVA [Concomitant]
  3. LIBRAX [Concomitant]
  4. NEXIUM [Concomitant]
  5. FLONASE [Concomitant]
  6. XOPENEX [Concomitant]
  7. PREDNISONE [Concomitant]
  8. XOPENEX [Concomitant]

REACTIONS (3)
  - DRUG DISPENSING ERROR [None]
  - DYSPNOEA [None]
  - WHEEZING [None]
